FAERS Safety Report 6095576-5 (Version None)
Quarter: 2009Q1

REPORT INFORMATION
  Report Type: 
  Country: None (occurrence: None)
  Receive Date: 20090227
  Receipt Date: 20080808
  Transmission Date: 20090719
  Serious: Yes (Other)
  Sender: FDA-Public Use
  Company Number: A0725619A

PATIENT
  Age: 37 Year
  Sex: Female
  Weight: 53.2 kg

DRUGS (5)
  1. LAMICTAL [Suspect]
     Dosage: 200MG PER DAY
     Route: 048
  2. DEPAKOTE [Concomitant]
     Dosage: 125MG THREE TIMES PER DAY
     Route: 048
     Dates: start: 20061201
  3. SEROQUEL [Concomitant]
  4. ATIVAN [Concomitant]
  5. LORAZEPAM [Concomitant]

REACTIONS (1)
  - CONVULSION [None]
